FAERS Safety Report 8777866 (Version 1)
Quarter: 2012Q4

REPORT INFORMATION
  Report Type: Report from Study
  Country: JP (occurrence: JP)
  Receive Date: 20120911
  Receipt Date: 20120911
  Transmission Date: 20130627
  Serious: Yes (Death, Hospitalization, Other)
  Sender: FDA-Public Use
  Company Number: PHHY2012JP078262

PATIENT
  Age: 49 Year
  Sex: Female
  Weight: 42 kg

DRUGS (6)
  1. AFINITOR [Suspect]
     Indication: METASTATIC RENAL CELL CARCINOMA
     Dosage: 10 mg, daily
     Route: 048
     Dates: start: 20111221, end: 20120105
  2. THYRADIN S [Concomitant]
     Dosage: 100 ug, UNK
     Route: 048
     Dates: end: 20120119
  3. BROCIN-CODEINE [Concomitant]
     Indication: METASTATIC RENAL CELL CARCINOMA
     Dosage: 4.5 ml, UNK
     Route: 048
     Dates: end: 20120207
  4. URSO [Concomitant]
     Dosage: 300 mg, UNK
     Route: 048
     Dates: end: 20120119
  5. LOXONIN [Concomitant]
     Indication: METASTATIC RENAL CELL CARCINOMA
     Dosage: 120 mg, UNK
     Route: 048
     Dates: end: 20120116
  6. ZOMETA [Concomitant]
     Indication: METASTATIC RENAL CELL CARCINOMA
     Dosage: 4 mg, UNK
     Route: 042
     Dates: end: 20120131

REACTIONS (17)
  - Depressed level of consciousness [Recovered/Resolved]
  - Large intestine perforation [Not Recovered/Not Resolved]
  - Hypoalbuminaemia [Recovering/Resolving]
  - Interstitial lung disease [Not Recovered/Not Resolved]
  - Dyspnoea [Not Recovered/Not Resolved]
  - Cough [Not Recovered/Not Resolved]
  - Respiratory disorder [Not Recovered/Not Resolved]
  - Pneumonia [Not Recovered/Not Resolved]
  - Hypokalaemia [Recovering/Resolving]
  - Anaemia [Unknown]
  - Stomatitis [Recovered/Resolved]
  - Brain natriuretic peptide increased [Unknown]
  - Neoplasm progression [Fatal]
  - Malignant neoplasm progression [Fatal]
  - Blood creatinine increased [Recovered/Resolved]
  - Blood urea increased [Recovered/Resolved]
  - Hyperglycaemia [Not Recovered/Not Resolved]
